FAERS Safety Report 10661102 (Version 2)
Quarter: 2016Q3

REPORT INFORMATION
  Report Type: Spontaneous
  Country: AU (occurrence: AU)
  Receive Date: 20141218
  Receipt Date: 20160701
  Transmission Date: 20161109
  Serious: Yes (Death, Other)
  Sender: FDA-Public Use
  Company Number: AU-ALEXION PHARMACEUTICALS INC-A201404700

PATIENT
  Age: 5 Year
  Sex: Male

DRUGS (10)
  1. SOLIRIS [Suspect]
     Active Substance: ECULIZUMAB
     Indication: HAEMOLYTIC URAEMIC SYNDROME
     Dosage: 600 MG, QW
     Route: 042
     Dates: start: 201410
  2. ETOPOSIDE. [Concomitant]
     Active Substance: ETOPOSIDE
     Indication: PRODUCT USED FOR UNKNOWN INDICATION
     Dosage: 60 MG/KG, UNK
     Route: 065
  3. LASIX [Concomitant]
     Active Substance: FUROSEMIDE
     Indication: OLIGURIA
     Dosage: UNK
     Route: 065
  4. HYDRALAZINE [Concomitant]
     Active Substance: HYDRALAZINE HYDROCHLORIDE
     Indication: VENOOCCLUSIVE DISEASE
     Route: 042
  5. NIFEDIPINE. [Concomitant]
     Active Substance: NIFEDIPINE
     Indication: PRODUCT USED FOR UNKNOWN INDICATION
     Dosage: UNK
     Route: 042
  6. HEPARIN [Concomitant]
     Active Substance: HEPARIN SODIUM
     Indication: PRODUCT USED FOR UNKNOWN INDICATION
     Route: 065
  7. SOLIRIS [Suspect]
     Active Substance: ECULIZUMAB
     Dosage: 600 MG, QW
     Route: 042
  8. CIDOFOVIR. [Concomitant]
     Active Substance: CIDOFOVIR
     Indication: PRODUCT USED FOR UNKNOWN INDICATION
     Route: 065
  9. SOLIRIS [Suspect]
     Active Substance: ECULIZUMAB
     Dosage: 600 MG, Q2W
     Route: 042
  10. SOLIRIS [Suspect]
     Active Substance: ECULIZUMAB
     Dosage: 300 MG, QW
     Route: 042
     Dates: start: 20141107

REACTIONS (7)
  - Drug ineffective [Unknown]
  - Thrombotic microangiopathy [Unknown]
  - Multiple organ dysfunction syndrome [Fatal]
  - Thrombotic microangiopathy [Unknown]
  - Renal failure [Fatal]
  - Gastrointestinal haemorrhage [Unknown]
  - Pancreatitis viral [Fatal]

NARRATIVE: CASE EVENT DATE: 20141209
